FAERS Safety Report 10040722 (Version 1)
Quarter: 2014Q1

REPORT INFORMATION
  Report Type: Spontaneous
  Country: US (occurrence: None)
  Receive Date: 20140326
  Receipt Date: 20140326
  Transmission Date: 20141002
  Serious: No
  Sender: FDA-Public Use
  Company Number: None

PATIENT
  Age: 7 Month
  Sex: Female
  Weight: 7.71 kg

DRUGS (1)
  1. HYLANDS TEETHING TABLETS [Suspect]
     Indication: TEETHING
     Dosage: 2 PILLS
     Route: 048
     Dates: start: 20140322, end: 20140325

REACTIONS (1)
  - Vomiting [None]
